FAERS Safety Report 9859260 (Version 2)
Quarter: 2014Q1

REPORT INFORMATION
  Report Type: Spontaneous
  Country: US (occurrence: US)
  Receive Date: 20140131
  Receipt Date: 20140131
  Transmission Date: 20141002
  Serious: No
  Sender: FDA-Public Use
  Company Number: US-GILEAD-2013-0068403

PATIENT
  Age: 36 Year
  Sex: Male
  Weight: 72.56 kg

DRUGS (12)
  1. CAYSTON [Suspect]
     Indication: CYSTIC FIBROSIS
     Dosage: 75 MG, CYCLICAL
     Route: 055
     Dates: start: 20120726
  2. ADVAIR [Concomitant]
     Indication: SINUSITIS
  3. AQUADEKS                           /07517101/ [Concomitant]
     Indication: CYSTIC FIBROSIS
  4. AQUADEKS                           /07517101/ [Concomitant]
     Indication: PANCREATIC INSUFFICIENCY
  5. AZITHRO [Concomitant]
     Indication: LUNG DISORDER
  6. BUDESONIDE [Concomitant]
     Indication: CROHN^S DISEASE
  7. SODIUM CHLORIDE [Concomitant]
     Indication: INCREASED VISCOSITY OF BRONCHIAL SECRETION
  8. LANTUS [Concomitant]
     Indication: BLOOD GLUCOSE ABNORMAL
  9. NOVOLOG [Concomitant]
     Indication: BLOOD GLUCOSE ABNORMAL
  10. PULMOZYME [Concomitant]
     Indication: INCREASED VISCOSITY OF BRONCHIAL SECRETION
  11. ZENPEP [Concomitant]
     Indication: PANCREATIC INSUFFICIENCY
  12. OMEPRAZOLE [Concomitant]
     Indication: GASTROOESOPHAGEAL REFLUX DISEASE

REACTIONS (6)
  - Pain in extremity [Recovered/Resolved]
  - Pain in extremity [Recovered/Resolved]
  - Arthralgia [Recovered/Resolved]
  - Pyrexia [Recovered/Resolved]
  - Rash [Recovered/Resolved]
  - Rash [Recovered/Resolved]
